FAERS Safety Report 17225365 (Version 2)
Quarter: 2020Q1

REPORT INFORMATION
  Report Type: Spontaneous
  Country: IT (occurrence: IT)
  Receive Date: 20200102
  Receipt Date: 20200129
  Transmission Date: 20200409
  Serious: Yes (Hospitalization)
  Sender: FDA-Public Use
  Company Number: IT-OTSUKA-2019_043119

PATIENT
  Age: 15 Year
  Sex: Female
  Weight: 68 kg

DRUGS (2)
  1. GABAPENTIN. [Suspect]
     Active Substance: GABAPENTIN
     Indication: INTENTIONAL OVERDOSE
     Dosage: 25 DF, SINGLE
     Route: 048
     Dates: start: 20191205, end: 20191205
  2. ARIPIPRAZOLE. [Suspect]
     Active Substance: ARIPIPRAZOLE
     Indication: INTENTIONAL OVERDOSE
     Dosage: 1400 MG, SINGLE
     Route: 048
     Dates: start: 20191205, end: 20191205

REACTIONS (4)
  - Vertigo [Recovered/Resolved]
  - Somnolence [Recovered/Resolved]
  - Intentional overdose [Unknown]
  - Nausea [Recovered/Resolved]

NARRATIVE: CASE EVENT DATE: 20191205
